FAERS Safety Report 24555486 (Version 1)
Quarter: 2024Q4

REPORT INFORMATION
  Report Type: Report from Study
  Country: US (occurrence: US)
  Receive Date: 20241028
  Receipt Date: 20241028
  Transmission Date: 20250115
  Serious: Yes (Hospitalization)
  Sender: ROCHE
  Company Number: US-ROCHE-2273214

PATIENT
  Age: 64 Year
  Sex: Female

DRUGS (4)
  1. RITUXAN [Suspect]
     Active Substance: RITUXIMAB
     Indication: Nervous system disorder
     Dosage: DATE OF SERVICE: 16/SEP/2021,  15/SEP/2022
     Route: 041
     Dates: start: 20171229
  2. RITUXAN [Suspect]
     Active Substance: RITUXIMAB
     Indication: Malignant neoplasm of unknown primary site
     Route: 041
  3. RITUXAN [Suspect]
     Active Substance: RITUXIMAB
     Indication: Paraneoplastic neurological syndrome
  4. CELLCEPT [Suspect]
     Active Substance: MYCOPHENOLATE MOFETIL
     Indication: Neurological symptom
     Route: 065

REACTIONS (7)
  - Off label use [Unknown]
  - Small intestinal obstruction [Unknown]
  - Limb injury [Unknown]
  - Blood pressure increased [Unknown]
  - Alopecia [Unknown]
  - Fatigue [Unknown]
  - Off label use [Unknown]
